FAERS Safety Report 23508682 (Version 1)
Quarter: 2024Q1

REPORT INFORMATION
  Report Type: Spontaneous
  Country: IT (occurrence: IT)
  Receive Date: 20240209
  Receipt Date: 20240209
  Transmission Date: 20240410
  Serious: Yes (Other)
  Sender: FDA-Public Use
  Company Number: None

PATIENT
  Age: 65 Year
  Sex: Male

DRUGS (2)
  1. TAFINLAR [Suspect]
     Active Substance: DABRAFENIB MESYLATE
     Indication: Malignant melanoma
     Dosage: UNK (TAFINLAR 75 MG CPR , 2 CPR ( 150 MG) ORE 8.00 E 2 CPR ( 150 MG) ORE 20.00.)
     Route: 048
     Dates: start: 20230619, end: 20240111
  2. MEKINIST [Suspect]
     Active Substance: TRAMETINIB DIMETHYL SULFOXIDE
     Indication: Malignant melanoma
     Dosage: UNK (MEKINIST 2 MG COMPRESSE; 1 CPR /DIE.)
     Route: 048
     Dates: start: 20230619, end: 20240111

REACTIONS (5)
  - Acute interstitial pneumonitis [Recovering/Resolving]
  - Mucosal inflammation [Unknown]
  - Dysgeusia [Unknown]
  - Pruritus [Unknown]
  - Nausea [Unknown]

NARRATIVE: CASE EVENT DATE: 20230907
